FAERS Safety Report 6402785-1 (Version None)
Quarter: 2009Q4

REPORT INFORMATION
  Report Type: 
  Country: None (occurrence: None)
  Receive Date: 20091016
  Receipt Date: 20070321
  Transmission Date: 20100525
  Serious: Yes (Disabling)
  Sender: FDA-Public Use
  Company Number: US-ASTRAZENECA-2006UW10832

PATIENT
  Sex: Female
  Weight: 73.5 kg

DRUGS (29)
  1. SEROQUEL [Suspect]
     Indication: SLEEP DISORDER
     Route: 048
     Dates: start: 20031110
  2. ZYPREXA [Suspect]
     Dosage: 5 TO 10 MG
     Dates: start: 20011016
  3. LEXAPRO [Concomitant]
     Dates: start: 20031105
  4. EFFEXOR XR [Concomitant]
     Dosage: 75 TO 150 MG
     Dates: start: 20031105
  5. NABUMETONE [Concomitant]
     Dosage: 750 TO 1500 MG
     Route: 048
     Dates: start: 20050105
  6. ARTHROTEC [Concomitant]
     Dates: start: 20040105
  7. HYZAAR [Concomitant]
     Dosage: 50/12.5 MG , EVERYDAY
     Dates: start: 20050517
  8. ULTRAM [Concomitant]
     Indication: PAIN
     Dates: start: 20050517
  9. NEURONTIN [Concomitant]
     Indication: SLEEP DISORDER
     Dosage: 300 TO 600 MG
     Route: 048
     Dates: start: 20050713
  10. GLUCOTROL XL [Concomitant]
     Dates: start: 20040720
  11. COZAAR [Concomitant]
     Dates: start: 20040720
  12. ALEVE [Concomitant]
     Dosage: TWICE A DAY
     Dates: start: 20040720
  13. TYLENOL [Concomitant]
     Indication: DISCOMFORT
     Dates: start: 20040112
  14. TYLENOL [Concomitant]
     Indication: FATIGUE
     Dates: start: 20040112
  15. TYLENOL [Concomitant]
     Indication: PAIN
     Dates: start: 20040112
  16. VICODIN [Concomitant]
     Indication: DISCOMFORT
     Dosage: 1 EACH / 1TAB (500/5 ) STRENGTH, TAKE 1-2 ORAL EVERY 6 HOURS
     Route: 048
     Dates: start: 20050105
  17. VICODIN [Concomitant]
     Indication: PAIN
     Dosage: 1 EACH / 1TAB (500/5 ) STRENGTH, TAKE 1-2 ORAL EVERY 6 HOURS
     Route: 048
     Dates: start: 20050105
  18. VICODIN [Concomitant]
     Dosage: 1 EACH / 1TAB (500/5 ) STRENGTH, TAKE 1-2 ORAL EVERY 6 HOURS
     Route: 048
     Dates: start: 20050105
  19. ALBUTEROL [Concomitant]
     Dosage: 2 PUFFS 2 TO 6 TIMES A DAY
     Dates: start: 20011016
  20. ADVAIR DISKUS 100/50 [Concomitant]
     Dosage: 100/ 50 , TWO TIMES A DAY
     Dates: start: 20000920
  21. ADVAIR DISKUS 100/50 [Concomitant]
     Dosage: 250/50 ONE PUFF TWO TIMES A DAY
     Dates: start: 20031105
  22. PREVACID [Concomitant]
     Dosage: 30 TO 60 MG
     Route: 048
     Dates: start: 20020206
  23. PERCOCET [Concomitant]
     Indication: PAIN
     Dosage: (5/ 325), 325 MG STRENGTH TAKE 1-2 TAB EVERY 4 HOUR
     Route: 048
     Dates: start: 20070208
  24. PREDNISONE [Concomitant]
     Indication: ASTHMA
     Dosage: 10 TO 40 MG
     Route: 048
     Dates: start: 20011016
  25. PREDNISONE [Concomitant]
     Indication: ARTHRITIS
     Dosage: 10 TO 40 MG
     Route: 048
     Dates: start: 20011016
  26. PREMARIN [Concomitant]
     Dates: start: 20070213
  27. IBUPROFEN [Concomitant]
     Indication: PAIN
     Dosage: 400 TWO TIMES
     Dates: start: 20070213
  28. ASPIRIN [Concomitant]
     Route: 048
     Dates: start: 20050120
  29. AMITRIPTYLINE [Concomitant]
     Indication: SLEEP DISORDER
     Dosage: AT NIGHT
     Dates: start: 20050713

REACTIONS (1)
  - ILL-DEFINED DISORDER [None]
